FAERS Safety Report 16543414 (Version 1)
Quarter: 2019Q3

REPORT INFORMATION
  Report Type: Spontaneous
  Country: GR (occurrence: GR)
  Receive Date: 20190709
  Receipt Date: 20190709
  Transmission Date: 20191004
  Serious: Yes (Other)
  Sender: FDA-Public Use
  Company Number: GR-SA-2019SA181351

PATIENT
  Age: 78 Year
  Sex: Male

DRUGS (1)
  1. APROVEL [Suspect]
     Active Substance: IRBESARTAN
     Dosage: 150 MG, QD
     Route: 048

REACTIONS (2)
  - Atrioventricular block first degree [Not Recovered/Not Resolved]
  - Bradycardia [Not Recovered/Not Resolved]
